FAERS Safety Report 15159074 (Version 4)
Quarter: 2018Q3

REPORT INFORMATION
  Report Type: Spontaneous
  Country: US (occurrence: US)
  Receive Date: 20180718
  Receipt Date: 20180809
  Transmission Date: 20181010
  Serious: Yes (Hospitalization, Other)
  Sender: FDA-Public Use
  Company Number: US-UNITED THERAPEUTICS-UNT-2018-010715

PATIENT
  Age: 37 Year
  Sex: Female
  Weight: 73.97 kg

DRUGS (2)
  1. REMODULIN [Suspect]
     Active Substance: TREPROSTINIL
     Dosage: 0.049 ?G/KG, CONTINUING
     Route: 041
  2. REMODULIN [Suspect]
     Active Substance: TREPROSTINIL
     Indication: PULMONARY ARTERIAL HYPERTENSION
     Dosage: 0.086 ?G/KG CONTINUING
     Route: 041
     Dates: start: 20171213

REACTIONS (8)
  - Depression [Unknown]
  - Sepsis [Unknown]
  - Vomiting [Unknown]
  - Psychotic disorder [Unknown]
  - Wrong dose [Unknown]
  - Drug dispensing error [Unknown]
  - Suicidal ideation [Unknown]
  - Device related infection [Unknown]

NARRATIVE: CASE EVENT DATE: 2018
